FAERS Safety Report 7444893-2 (Version None)
Quarter: 2011Q2

REPORT INFORMATION
  Report Type: 
  Country: None (occurrence: None)
  Receive Date: 20110429
  Receipt Date: 20110418
  Transmission Date: 20111010
  Serious: No
  Sender: FDA-Public Use
  Company Number: PHHY2010US79642

PATIENT
  Sex: Male

DRUGS (6)
  1. TOPROL-XL [Concomitant]
     Dosage: 25 MG
  2. PREVACID [Concomitant]
     Dosage: 30 MG
  3. TASIGNA [Suspect]
     Dosage: 200 MG, BID
     Route: 048
  4. NORVASC [Concomitant]
     Dosage: 2.5 MG
  5. AMLODIPINE [Concomitant]
     Dosage: 2.5 MG, UNK
  6. OMEPRAZOLE [Concomitant]
     Dosage: 10 MG, UNK

REACTIONS (3)
  - LACRIMATION INCREASED [None]
  - EYE PRURITUS [None]
  - PRURITUS [None]
